FAERS Safety Report 17829507 (Version 1)
Quarter: 2020Q2

REPORT INFORMATION
  Report Type: Spontaneous
  Country: US (occurrence: US)
  Receive Date: 20200527
  Receipt Date: 20200527
  Transmission Date: 20200714
  Serious: Yes (Hospitalization, Other)
  Sender: FDA-Public Use
  Company Number: US-AMGEN-USASP2020081336

PATIENT
  Age: 54 Year
  Sex: Male

DRUGS (2)
  1. REMICADE [Suspect]
     Active Substance: INFLIXIMAB
     Indication: ANKYLOSING SPONDYLITIS
     Dosage: UNK
     Route: 065
  2. PROLIA [Suspect]
     Active Substance: DENOSUMAB
     Indication: OSTEOPOROSIS
     Dosage: UNK
     Route: 065

REACTIONS (6)
  - Ill-defined disorder [Recovering/Resolving]
  - Decreased immune responsiveness [Recovering/Resolving]
  - Pain [Not Recovered/Not Resolved]
  - Thrombosis [Recovering/Resolving]
  - Histoplasmosis [Recovering/Resolving]
  - Hip fracture [Recovering/Resolving]
